FAERS Safety Report 4334841-6 (Version None)
Quarter: 2004Q2

REPORT INFORMATION
  Report Type: 
  Country: None (occurrence: None)
  Receive Date: 20040405
  Receipt Date: 20040319
  Transmission Date: 20050107
  Serious: Yes (Hospitalization, Other)
  Sender: FDA-Public Use
  Company Number: DE-SHR-04-023240

PATIENT
  Age: 73 Year
  Sex: Female
  Weight: 48 kg

DRUGS (9)
  1. SOTALOL HCL [Suspect]
     Indication: ARRHYTHMIA
     Dosage: SEE IMAGE
     Route: 048
     Dates: start: 20000101, end: 20031223
  2. SOTALOL HCL [Suspect]
     Indication: HAEMOTHORAX
     Dosage: SEE IMAGE
     Route: 048
     Dates: start: 20000101, end: 20031223
  3. SOTALOL HCL [Suspect]
     Indication: ARRHYTHMIA
     Dosage: SEE IMAGE
     Route: 048
     Dates: start: 20031224, end: 20040106
  4. SOTALOL HCL [Suspect]
     Indication: HAEMOTHORAX
     Dosage: SEE IMAGE
     Route: 048
     Dates: start: 20031224, end: 20040106
  5. AVELOX [Suspect]
     Indication: INFECTION
     Dosage: 400 MG, INTRAVENOUS
     Route: 042
     Dates: start: 20040104, end: 20040107
  6. ACETYLSALICYLIC ACID SRT [Concomitant]
  7. VIOXX [Concomitant]
  8. ENAHEXAL (ENALAPRIL MALEATE) [Concomitant]
  9. HYDROCHLOROTHIAZIDE [Concomitant]

REACTIONS (12)
  - ANAEMIA [None]
  - ATRIAL FIBRILLATION [None]
  - ATRIAL TACHYCARDIA [None]
  - DRUG INTERACTION [None]
  - ELECTROCARDIOGRAM QT PROLONGED [None]
  - HAEMOTHORAX [None]
  - PLEURAL EFFUSION [None]
  - SYNCOPE [None]
  - TACHYCARDIA [None]
  - TORSADE DE POINTES [None]
  - VENTRICULAR EXTRASYSTOLES [None]
  - VERTIGO [None]
